FAERS Safety Report 8480042-X (Version None)
Quarter: 2012Q2

REPORT INFORMATION
  Report Type: 
  Country: None (occurrence: None)
  Receive Date: 20120629
  Receipt Date: 20120620
  Transmission Date: 20120825
  Serious: Yes (Other)
  Sender: FDA-Public Use
  Company Number: US-ASTRAZENECA-2010SE45443

PATIENT
  Age: 75 Year
  Sex: Female

DRUGS (6)
  1. DIAZEPAM [Suspect]
     Route: 065
  2. BETA ADRENERGIC BLOCKERS [Suspect]
     Route: 065
  3. NEXIUM [Suspect]
     Route: 048
     Dates: start: 20100924
  4. REGLAN [Suspect]
     Route: 065
  5. TOPROL-XL [Suspect]
     Route: 048
  6. LIPITOR [Suspect]
     Route: 065

REACTIONS (10)
  - DRUG HYPERSENSITIVITY [None]
  - BALANCE DISORDER [None]
  - GASTROOESOPHAGEAL REFLUX DISEASE [None]
  - THINKING ABNORMAL [None]
  - NAUSEA [None]
  - CONCUSSION [None]
  - CARDIAC DISORDER [None]
  - HEADACHE [None]
  - DRUG DOSE OMISSION [None]
  - BRAIN OEDEMA [None]
